FAERS Safety Report 9631301 (Version 2)
Quarter: 2013Q4

REPORT INFORMATION
  Report Type: Spontaneous
  Country: DE (occurrence: DE)
  Receive Date: 20131018
  Receipt Date: 20131230
  Transmission Date: 20140711
  Serious: Yes (Hospitalization)
  Sender: FDA-Public Use
  Company Number: DE-TEVA-437662GER

PATIENT
  Age: 60 Year
  Sex: Female
  Weight: 66 kg

DRUGS (2)
  1. LOSAR TEVA 50 MG FILMTABLETTEN [Suspect]
     Indication: HYPERTENSION
     Dosage: 50 MILLIGRAM DAILY;
     Route: 048
     Dates: start: 20130701, end: 20130927
  2. LOSAR TEVA 50 MG FILMTABLETTEN [Suspect]
     Route: 048
     Dates: start: 2011, end: 2011

REACTIONS (2)
  - Hypertensive crisis [Recovered/Resolved]
  - Drug effect decreased [Unknown]
